FAERS Safety Report 10301069 (Version 2)
Quarter: 2014Q4

REPORT INFORMATION
  Report Type: Spontaneous
  Country: US (occurrence: US)
  Receive Date: 20140714
  Receipt Date: 20141028
  Transmission Date: 20150528
  Serious: Yes (Disabling, Other)
  Sender: FDA-Public Use
  Company Number: US-ACTELION-A-US2014-101732

PATIENT
  Age: 60 Year
  Sex: Male

DRUGS (6)
  1. VALCHLOR [Suspect]
     Active Substance: MECHLORETHAMINE
     Indication: MYCOSIS FUNGOIDES
     Dosage: 60 G, DAILY
     Route: 061
     Dates: start: 20140603
  2. NORCO [Concomitant]
     Active Substance: ACETAMINOPHEN\HYDROCODONE BITARTRATE
  3. OMEPRAZOLE. [Concomitant]
     Active Substance: OMEPRAZOLE
  4. CLOBETASOL [Concomitant]
     Active Substance: CLOBETASOL
     Dosage: 0.05 %, BID
     Route: 061
     Dates: start: 20120101
  5. TARGRETIN [Concomitant]
     Active Substance: BEXAROTENE
     Dosage: 150 MG, UNK
     Route: 061
     Dates: start: 20131216
  6. ATIVAN [Concomitant]
     Active Substance: LORAZEPAM

REACTIONS (8)
  - Eating disorder [Unknown]
  - Gastric ulcer [Unknown]
  - Haematemesis [Recovered/Resolved]
  - Infection [Unknown]
  - Epistaxis [Unknown]
  - Haemoptysis [Unknown]
  - Weight decreased [Unknown]
  - Nasopharyngitis [Not Recovered/Not Resolved]

NARRATIVE: CASE EVENT DATE: 20140626
